FAERS Safety Report 20505748 (Version 1)
Quarter: 2022Q1

REPORT INFORMATION
  Report Type: Spontaneous
  Country: US (occurrence: US)
  Receive Date: 20220223
  Receipt Date: 20220223
  Transmission Date: 20220423
  Serious: No
  Sender: FDA-Public Use
  Company Number: US-Hikma Pharmaceuticals USA Inc.-US-H14001-22-00238

PATIENT
  Age: 30 Year
  Sex: Male

DRUGS (1)
  1. FLUTICASONE [Suspect]
     Active Substance: FLUTICASONE
     Indication: Multiple allergies
     Dosage: UNKNOWN
     Route: 045

REACTIONS (2)
  - Gluten sensitivity [Not Recovered/Not Resolved]
  - Off label use [Not Recovered/Not Resolved]
